FAERS Safety Report 6251384-3 (Version None)
Quarter: 2009Q2

REPORT INFORMATION
  Report Type: 
  Country: None (occurrence: None)
  Receive Date: 20090630
  Receipt Date: 20090619
  Transmission Date: 20091009
  Serious: Yes (Hospitalization)
  Sender: FDA-Public Use
  Company Number: B0580628A

PATIENT
  Age: 45 Year
  Sex: Female
  Weight: 55 kg

DRUGS (2)
  1. ZINNAT [Suspect]
     Dosage: 500MG TWICE PER DAY
     Route: 048
     Dates: start: 20090611
  2. DUACT [Concomitant]
     Route: 048

REACTIONS (3)
  - DIZZINESS [None]
  - ERYTHEMA [None]
  - RASH [None]
